FAERS Safety Report 4979306-3 (Version None)
Quarter: 2006Q2

REPORT INFORMATION
  Report Type: 
  Country: None (occurrence: None)
  Receive Date: 20060421
  Receipt Date: 20051006
  Transmission Date: 20061013
  Serious: Yes (Disabling)
  Sender: FDA-Public Use
  Company Number: US-MERCK-0510USA06243

PATIENT
  Age: 66 Year
  Sex: Female
  Weight: 75 kg

DRUGS (1)
  1. VIOXX [Suspect]
     Indication: ARTHRITIS
     Route: 048
     Dates: start: 20020101, end: 20040101

REACTIONS (18)
  - ANGLE CLOSURE GLAUCOMA [None]
  - BALANCE DISORDER [None]
  - CAROTID ARTERY DISEASE [None]
  - CATARACT [None]
  - CONFUSIONAL STATE [None]
  - CORNEAL ABRASION [None]
  - DEMYELINATION [None]
  - DYSCALCULIA [None]
  - ENCEPHALITIS [None]
  - GLIOMA [None]
  - HYPERTENSION [None]
  - ISCHAEMIC STROKE [None]
  - LACUNAR INFARCTION [None]
  - MACULAR DEGENERATION [None]
  - MACULAR OEDEMA [None]
  - NUCLEAR MAGNETIC RESONANCE IMAGING BRAIN ABNORMAL [None]
  - OPTIC ISCHAEMIC NEUROPATHY [None]
  - VISUAL FIELD DEFECT [None]
